FAERS Safety Report 24613549 (Version 1)
Quarter: 2024Q4

REPORT INFORMATION
  Report Type: Spontaneous
  Country: US (occurrence: US)
  Receive Date: 20241113
  Receipt Date: 20241113
  Transmission Date: 20250114
  Serious: Yes (Other)
  Sender: SANDOZ
  Company Number: US-MLMSERVICE-20241105-PI244936-00071-1

PATIENT
  Age: 72 Year
  Sex: Male

DRUGS (3)
  1. BUDESONIDE [Suspect]
     Active Substance: BUDESONIDE
     Indication: Asthma-chronic obstructive pulmonary disease overlap syndrome
     Dosage: HIGH DOSE
     Route: 055
     Dates: start: 2016
  2. FLUTICASONE FUROATE\SALMETEROL XINAFOATE [Suspect]
     Active Substance: FLUTICASONE FUROATE\SALMETEROL XINAFOATE
     Indication: Asthma-chronic obstructive pulmonary disease overlap syndrome
     Dosage: FLUTICASONE-SALMETEROL 500MCG/50MCG/HIGH DOSE
     Route: 055
     Dates: start: 2016
  3. MOMETASONE [Suspect]
     Active Substance: MOMETASONE
     Indication: Asthma-chronic obstructive pulmonary disease overlap syndrome
     Dosage: HIGH DOSE
     Route: 055
     Dates: start: 2016

REACTIONS (1)
  - Osteonecrosis [Recovering/Resolving]
